FAERS Safety Report 6515475-1 (Version None)
Quarter: 2009Q4

REPORT INFORMATION
  Report Type: 
  Country: None (occurrence: None)
  Receive Date: 20091223
  Receipt Date: 20091215
  Transmission Date: 20100525
  Serious: Yes (Hospitalization)
  Sender: FDA-Public Use
  Company Number: PHHO2009JP14755

PATIENT
  Sex: Male
  Weight: 88 kg

DRUGS (13)
  1. ALISKIREN [Suspect]
     Indication: CARDIAC FAILURE
     Dosage: 150 MG DAILY
     Route: 048
     Dates: start: 20090903
  2. BLINDED ALISKIREN ALI+TAB+CF [Suspect]
     Dosage: NO TREATMENT RECEIVED
     Route: 048
  3. BLINDED ENALAPRIL COMP-ENA+ [Suspect]
     Dosage: NO TREATMENT RECEIVED
     Route: 048
  4. BLINDED NO TREATMENT RECEIVED NOMED [Suspect]
     Dosage: NO TREATMENT RECEIVED
     Route: 048
  5. COMPARATOR ENALAPRIL [Suspect]
     Indication: CARDIAC FAILURE
     Dosage: 5 MG, QD
     Route: 048
     Dates: start: 20090803, end: 20090819
  6. COMPARATOR ENALAPRIL [Suspect]
     Dosage: 10 MG, QD
     Route: 048
     Dates: start: 20090820
  7. DIOVAN [Concomitant]
     Indication: HYPERTENSION
  8. AMARYL [Concomitant]
     Indication: DIABETES MELLITUS
  9. LASIX [Concomitant]
     Indication: CARDIAC FAILURE
  10. PIMOBENDAN [Concomitant]
     Indication: CARDIAC FAILURE
  11. METFORMIN HCL [Concomitant]
     Indication: DIABETES MELLITUS
  12. ZYLORIC [Concomitant]
     Indication: HYPERURICAEMIA
  13. ARTIST [Concomitant]
     Indication: CARDIAC FAILURE

REACTIONS (14)
  - ABDOMINAL DISTENSION [None]
  - BRAIN OEDEMA [None]
  - CORTICAL LAMINAR NECROSIS [None]
  - DECREASED APPETITE [None]
  - FATIGUE [None]
  - GALLBLADDER ENLARGEMENT [None]
  - GASTRIC ULCER [None]
  - HAEMORRHAGIC INFARCTION [None]
  - OESOPHAGEAL CARCINOMA [None]
  - OESOPHAGEAL DYSPLASIA [None]
  - PLEURAL EFFUSION [None]
  - PULMONARY HYPERTENSION [None]
  - RENAL CYST [None]
  - SCAR [None]
